FAERS Safety Report 17669971 (Version 4)
Quarter: 2020Q4

REPORT INFORMATION
  Report Type: Spontaneous
  Country: US (occurrence: US)
  Receive Date: 20200415
  Receipt Date: 20201007
  Transmission Date: 20210113
  Serious: Yes (Other)
  Sender: FDA-Public Use
  Company Number: US-PFIZER INC-2017371380

PATIENT
  Age: 69 Year
  Sex: Female

DRUGS (2)
  1. IBRANCE [Suspect]
     Active Substance: PALBOCICLIB
     Dosage: 125 MG, UNK
  2. IBRANCE [Suspect]
     Active Substance: PALBOCICLIB
     Indication: BREAST CANCER METASTATIC
     Dosage: 125 MG, CYCLIC (DAILY, 3 WEEKS FOLLOWED BY 1 WEEK OFF AND TAKE WITH FOOD)
     Route: 048
     Dates: start: 20170824

REACTIONS (5)
  - Diabetes mellitus [Unknown]
  - Insomnia [Unknown]
  - Fatigue [Recovering/Resolving]
  - Cough [Unknown]
  - Pharyngeal disorder [Unknown]
